FAERS Safety Report 12169554 (Version 2)
Quarter: 2016Q2

REPORT INFORMATION
  Report Type: Spontaneous
  Country: US (occurrence: US)
  Receive Date: 20160310
  Receipt Date: 20160413
  Transmission Date: 20160815
  Serious: Yes (Other)
  Sender: FDA-Public Use
  Company Number: US-GLAXOSMITHKLINE-US2016GSK034712

PATIENT
  Sex: Female

DRUGS (1)
  1. VENTOLIN [Suspect]
     Active Substance: ALBUTEROL SULFATE
     Indication: PRODUCT USED FOR UNKNOWN INDICATION
     Dosage: UNK, U

REACTIONS (5)
  - Cough [Recovered/Resolved]
  - Foreign body aspiration [Unknown]
  - Product quality issue [Unknown]
  - Oropharyngeal pain [Unknown]
  - Product contamination physical [Unknown]

NARRATIVE: CASE EVENT DATE: 20160309
